FAERS Safety Report 8050389-X (Version None)
Quarter: 2012Q1

REPORT INFORMATION
  Report Type: 
  Country: None (occurrence: None)
  Receive Date: 20120117
  Receipt Date: 20120109
  Transmission Date: 20120608
  Serious: Yes (Other)
  Sender: FDA-Public Use
  Company Number: US-ALLERGAN-1200101US

PATIENT
  Age: 72 Year
  Sex: Male

DRUGS (6)
  1. ZYMAXID [Suspect]
     Indication: CATARACT OPERATION
     Dosage: UNK
     Route: 047
     Dates: start: 20111102
  2. BROMDAY [Suspect]
     Indication: CATARACT OPERATION
     Dosage: UNK
     Route: 047
     Dates: start: 20111102
  3. PREDNISOLONE ACETATE [Suspect]
     Dosage: UNK
     Route: 047
     Dates: start: 20111103
  4. TETRACAINE HYDROCHLORIDE [Suspect]
     Indication: CATARACT OPERATION
     Dosage: UNK
     Route: 047
     Dates: start: 20111102, end: 20111102
  5. PREDNISOLONE ACETATE [Suspect]
     Indication: CATARACT OPERATION
     Dosage: UNK
     Route: 047
     Dates: start: 20111102
  6. BSS [Suspect]
     Indication: CATARACT OPERATION
     Dosage: UNK
     Route: 031
     Dates: start: 20111102, end: 20111102

REACTIONS (1)
  - TOXIC ANTERIOR SEGMENT SYNDROME [None]
